FAERS Safety Report 24794531 (Version 5)
Quarter: 2025Q2

REPORT INFORMATION
  Report Type: Spontaneous
  Country: JP (occurrence: JP)
  Receive Date: 20241231
  Receipt Date: 20250417
  Transmission Date: 20250717
  Serious: Yes (Other)
  Sender: UCB
  Company Number: JP-UCBJ-CD202412902UCBPHAPROD

PATIENT
  Age: 54 Year
  Sex: Female

DRUGS (8)
  1. FINTEPLA [Suspect]
     Active Substance: FENFLURAMINE
     Indication: Lennox-Gastaut syndrome
     Dosage: 0.1 MILLIGRAM/KILOGRAM, DAILY
     Route: 048
     Dates: start: 20241105
  2. FINTEPLA [Suspect]
     Active Substance: FENFLURAMINE
     Dosage: 0.2 MILLIGRAM/KILOGRAM, DAILY
     Route: 048
  3. FINTEPLA [Suspect]
     Active Substance: FENFLURAMINE
     Dosage: 0.1 MILLIGRAM/KILOGRAM, DAILY
     Route: 048
  4. FINTEPLA [Suspect]
     Active Substance: FENFLURAMINE
     Dosage: 1 MILLIGRAM/KILOGRAM, DAILY
     Route: 048
     Dates: start: 20250227
  5. PHENYTOIN SODIUM [Concomitant]
     Active Substance: PHENYTOIN SODIUM
     Indication: Lennox-Gastaut syndrome
     Dosage: 1300 MILLIGRAM, ONCE DAILY (QD)
  6. RIVOTRIL [Concomitant]
     Active Substance: CLONAZEPAM
     Indication: Dyskinesia
     Dosage: 0.5 MILLIGRAM, ONCE DAILY (QD)
  7. DEPAKENE [Concomitant]
     Active Substance: VALPROIC ACID
     Indication: Lennox-Gastaut syndrome
     Dosage: 1200 MILLIGRAM, ONCE DAILY (QD)
  8. FYCOMPA [Concomitant]
     Active Substance: PERAMPANEL
     Indication: Lennox-Gastaut syndrome
     Dosage: 6 MILLIGRAM, ONCE DAILY (QD)

REACTIONS (7)
  - Depressed level of consciousness [Recovered/Resolved]
  - Epilepsy [Recovering/Resolving]
  - Status epilepticus [Recovered/Resolved]
  - Heart valve incompetence [Not Recovered/Not Resolved]
  - Off label use [Unknown]
  - Prescribed underdose [Unknown]
  - Prescribed overdose [Unknown]

NARRATIVE: CASE EVENT DATE: 20241105
